FAERS Safety Report 5989734-5 (Version None)
Quarter: 2008Q4

REPORT INFORMATION
  Report Type: 
  Country: None (occurrence: None)
  Receive Date: 20081208
  Receipt Date: 20081126
  Transmission Date: 20090506
  Serious: No
  Sender: FDA-Public Use
  Company Number: 20678

PATIENT
  Age: 56 Year
  Sex: Female

DRUGS (8)
  1. ANZATAX [Suspect]
     Dosage: 340 MG IV
     Route: 042
     Dates: start: 20081118, end: 20081118
  2. SOLDESAM [Concomitant]
  3. MEGACORT [Concomitant]
  4. TRIMETON [Concomitant]
  5. LORAZEPAM [Concomitant]
  6. RANIDIL [Concomitant]
  7. EUTIROX [Concomitant]
  8. SOLU-CORTEF [Concomitant]

REACTIONS (1)
  - DRUG HYPERSENSITIVITY [None]
